FAERS Safety Report 9083973 (Version 1)
Quarter: 2013Q1

REPORT INFORMATION
  Report Type: Report from Study
  Country: US (occurrence: US)
  Receive Date: 20130131
  Receipt Date: 20130131
  Transmission Date: 20140127
  Serious: No
  Sender: FDA-Public Use
  Company Number: US-ABBOTT-12P-163-0986475-00

PATIENT
  Age: 42 Year
  Sex: Female

DRUGS (12)
  1. HUMIRA [Suspect]
     Indication: CROHN^S DISEASE
     Dates: start: 20120908, end: 20120908
  2. HUMIRA [Suspect]
     Dates: start: 20120922, end: 20120922
  3. HUMIRA [Suspect]
  4. LIALDA [Concomitant]
     Indication: CROHN^S DISEASE
     Dosage: 2 PILLS DAILY
  5. SYNTHROID [Concomitant]
     Indication: HYPOTHYROIDISM
     Route: 048
  6. PREDNISONE [Concomitant]
     Indication: CROHN^S DISEASE
     Route: 048
  7. FLONASE [Concomitant]
     Indication: HYPERSENSITIVITY
     Dosage: 2 SPRAYS AT PM DAILY
     Route: 050
  8. VSL#3 [Concomitant]
     Indication: CROHN^S DISEASE
     Dosage: DOUBLE STRENGTH; TAKES 4 PACKETS DAILY
  9. IRON [Concomitant]
     Indication: ANAEMIA
     Route: 048
  10. VITAMIN D [Concomitant]
     Indication: VITAMIN D DECREASED
  11. CALCIUM/MAGENSIUM/POTASSIUM [Concomitant]
     Indication: ROUTINE HEALTH MAINTENANCE
  12. MULTIVITAMIN [Concomitant]
     Indication: ROUTINE HEALTH MAINTENANCE

REACTIONS (1)
  - Injection site pain [Recovered/Resolved]
